FAERS Safety Report 11403388 (Version 1)
Quarter: 2015Q3

REPORT INFORMATION
  Report Type: Spontaneous
  Country: US (occurrence: US)
  Receive Date: 20150821
  Receipt Date: 20150821
  Transmission Date: 20151125
  Serious: No
  Sender: FDA-Public Use
  Company Number: US-TEVA-585363USA

PATIENT
  Age: 36 Year
  Sex: Female
  Weight: 83.99 kg

DRUGS (1)
  1. MIRCETTE [Suspect]
     Active Substance: DESOGESTREL\ETHINYL ESTRADIOL
     Route: 065

REACTIONS (3)
  - Oligomenorrhoea [Unknown]
  - Drug dose omission [Unknown]
  - Menstruation irregular [Unknown]

NARRATIVE: CASE EVENT DATE: 201506
